FAERS Safety Report 6505098-2 (Version None)
Quarter: 2009Q4

REPORT INFORMATION
  Report Type: 
  Country: None (occurrence: None)
  Receive Date: 20091218
  Receipt Date: 20091208
  Transmission Date: 20100525
  Serious: Yes (Other)
  Sender: FDA-Public Use
  Company Number: PHEH2009US17434

PATIENT
  Sex: Female

DRUGS (4)
  1. RECLAST [Suspect]
     Indication: OSTEOPOROSIS
     Dosage: UNK
     Dates: start: 20090901
  2. CALCIUM [Concomitant]
  3. GLUCOSAMINE W/CHONDROITIN [Concomitant]
  4. VITAMIN B-12 [Concomitant]

REACTIONS (4)
  - BONE DISORDER [None]
  - FALL [None]
  - WRIST FRACTURE [None]
  - WRIST SURGERY [None]
